FAERS Safety Report 5278193-6 (Version None)
Quarter: 2007Q1

REPORT INFORMATION
  Report Type: 
  Country: None (occurrence: None)
  Receive Date: 20061213
  Receipt Date: 20060518
  Transmission Date: 20070707
  Serious: Yes (Hospitalization)
  Sender: FDA-Public Use
  Company Number: 2006UW09753

PATIENT
  Age: 71 Year
  Sex: Female

DRUGS (7)
  1. SEROQUEL [Suspect]
  2. AZITHROMYCIN [Concomitant]
  3. PROTONIX [Concomitant]
  4. HEPARIN [Concomitant]
  5. POTASSIUM ACETATE [Concomitant]
  6. TYLENOL [Concomitant]
  7. ROCEPHIN [Concomitant]

REACTIONS (3)
  - CEREBROVASCULAR ACCIDENT [None]
  - NEUROLEPTIC MALIGNANT SYNDROME [None]
  - PYREXIA [None]
